FAERS Safety Report 9310692 (Version 5)
Quarter: 2013Q3

REPORT INFORMATION
  Report Type: Report from Study
  Country: BR (occurrence: BR)
  Receive Date: 20130527
  Receipt Date: 20130911
  Transmission Date: 20140515
  Serious: Yes (Hospitalization, Other)
  Sender: FDA-Public Use
  Company Number: BR-ROCHE-1219100

PATIENT
  Sex: Female
  Weight: 80 kg

DRUGS (10)
  1. ACTEMRA [Suspect]
     Indication: RHEUMATOID ARTHRITIS
     Dosage: LAST DOSE PRIOR TO SAE:15/APR/2013
     Route: 042
     Dates: start: 200910, end: 20121002
  2. ACTEMRA [Suspect]
     Dosage: LAST DOSE PRIOR TO SAE:15/APR/2013
     Route: 042
     Dates: start: 201302
  3. ACTEMRA [Suspect]
     Route: 042
     Dates: start: 201305
  4. ENALAPRIL [Concomitant]
     Indication: HYPERTENSION
     Route: 065
  5. GINKGO BILOBA [Concomitant]
     Indication: LABYRINTHITIS
  6. DRAMIN B6 [Concomitant]
     Indication: LABYRINTHITIS
  7. PURAN T4 [Concomitant]
     Indication: THYROID DISORDER
     Route: 065
  8. PREDNISONE [Concomitant]
     Indication: RHEUMATOID ARTHRITIS
  9. ARAVA [Concomitant]
     Indication: RHEUMATOID ARTHRITIS
  10. REUQUINOL [Concomitant]
     Indication: RHEUMATOID ARTHRITIS

REACTIONS (13)
  - Arthropathy [Not Recovered/Not Resolved]
  - Spinal disorder [Recovered/Resolved]
  - Thrombosis [Recovered/Resolved]
  - Cataract [Recovered/Resolved]
  - Bone loss [Recovered/Resolved]
  - Rheumatoid arthritis [Recovered/Resolved]
  - Arthralgia [Not Recovered/Not Resolved]
  - Abdominal pain upper [Not Recovered/Not Resolved]
  - Arthralgia [Unknown]
  - Intervertebral disc protrusion [Recovered/Resolved]
  - Hand deformity [Recovered/Resolved]
  - Mass [Recovered/Resolved]
  - Fatigue [Recovering/Resolving]
